FAERS Safety Report 8236055-6 (Version None)
Quarter: 2012Q1

REPORT INFORMATION
  Report Type: 
  Country: None (occurrence: None)
  Receive Date: 20120326
  Receipt Date: 20120315
  Transmission Date: 20120608
  Serious: Yes (Hospitalization)
  Sender: FDA-Public Use
  Company Number: US-BRISTOL-MYERS SQUIBB COMPANY-16457228

PATIENT
  Sex: Female

DRUGS (3)
  1. MYFORTIC [Concomitant]
  2. PREDNISONE TAB [Concomitant]
  3. NULOJIX [Suspect]
     Dosage: 5MG PER KILO
     Dates: start: 20120315

REACTIONS (1)
  - HEPATIC ENZYME INCREASED [None]
